FAERS Safety Report 25897234 (Version 1)
Quarter: 2025Q4

REPORT INFORMATION
  Report Type: Spontaneous
  Country: GB (occurrence: GB)
  Receive Date: 20251008
  Receipt Date: 20251008
  Transmission Date: 20260119
  Serious: Yes (Other)
  Sender: TEVA
  Company Number: GB-MHRA-TPP9858120C26184329YC1759390813524

PATIENT
  Age: 80 Year
  Sex: Female
  Weight: 52 kg

DRUGS (9)
  1. AMLODIPINE [Suspect]
     Active Substance: AMLODIPINE BESYLATE
     Indication: Ill-defined disorder
     Dosage: (DO NOT EXCEED 5MG DUE TO LEG SW.
     Route: 065
     Dates: start: 20250912
  2. LINAGLIPTIN [Concomitant]
     Active Substance: LINAGLIPTIN
     Indication: Ill-defined disorder
     Dates: start: 20250522
  3. ATORVASTATIN [Concomitant]
     Active Substance: ATORVASTATIN
     Indication: Ill-defined disorder
     Dates: start: 20250411
  4. FELODIPINE [Concomitant]
     Active Substance: FELODIPINE
     Indication: Ill-defined disorder
     Dates: start: 20250520, end: 20250731
  5. CARBOCYSTEINE [Concomitant]
     Active Substance: CARBOCYSTEINE
     Indication: Ill-defined disorder
     Dosage: TIME INTERVAL: 0.33333333 DAYS
     Route: 065
     Dates: start: 20250616
  6. ALBUTEROL [Concomitant]
     Active Substance: ALBUTEROL
     Indication: Ill-defined disorder
     Dosage: INHALE ONE TO TWO DOSES UP TO FOUR TIMES A DAY ...
     Dates: start: 20250217
  7. RAMIPRIL [Concomitant]
     Active Substance: RAMIPRIL
     Indication: Ill-defined disorder
     Dosage: IN THE EVENING
     Dates: start: 20250616
  8. INDAPAMIDE [Concomitant]
     Active Substance: INDAPAMIDE
     Indication: Ill-defined disorder
     Dosage: EACH MORNING
     Dates: start: 20250529, end: 20250912
  9. EVOLVE HA [Concomitant]
     Indication: Ill-defined disorder
     Dosage: ONE DROP IN TO THE AFFECTED EYE(S) TWO TO FOUR ...
     Dates: start: 20250616

REACTIONS (1)
  - Joint swelling [Not Recovered/Not Resolved]
